FAERS Safety Report 4319234-X (Version None)
Quarter: 2004Q1

REPORT INFORMATION
  Report Type: 
  Country: None (occurrence: None)
  Receive Date: 20040316
  Receipt Date: 20040304
  Transmission Date: 20041129
  Serious: No
  Sender: FDA-Public Use
  Company Number: 04P-167-0252669

PATIENT
  Sex: Female

DRUGS (1)
  1. MERIDIA [Suspect]
     Dosage: 10 MG, 1 IN 1 D, PER ORAL
     Route: 048

REACTIONS (2)
  - COMPLICATIONS OF MATERNAL EXPOSURE TO THERAPEUTIC DRUGS [None]
  - PREMATURE BABY [None]
